FAERS Safety Report 11808971 (Version 1)
Quarter: 2015Q4

REPORT INFORMATION
  Report Type: Spontaneous
  Country: US (occurrence: US)
  Receive Date: 20151207
  Receipt Date: 20151207
  Transmission Date: 20160305
  Serious: No
  Sender: FDA-Public Use
  Company Number: US-ROCHE-1600795

PATIENT
  Sex: Female

DRUGS (3)
  1. VALIUM [Suspect]
     Active Substance: DIAZEPAM
     Indication: PRODUCT USED FOR UNKNOWN INDICATION
     Route: 065
  2. GRALISE [Suspect]
     Active Substance: GABAPENTIN
     Indication: ARTHRITIS
  3. GRALISE [Suspect]
     Active Substance: GABAPENTIN
     Indication: NEUROPATHY PERIPHERAL
     Route: 065

REACTIONS (3)
  - Somnolence [Recovered/Resolved]
  - Fear [Unknown]
  - Dizziness [Unknown]

NARRATIVE: CASE EVENT DATE: 20150609
